FAERS Safety Report 22113712 (Version 1)
Quarter: 2023Q1

REPORT INFORMATION
  Report Type: Spontaneous
  Country: CA (occurrence: CA)
  Receive Date: 20230320
  Receipt Date: 20230320
  Transmission Date: 20230417
  Serious: Yes (Other)
  Sender: FDA-Public Use
  Company Number: CA-JNJFOC-20230339356

PATIENT
  Age: 83 Year
  Sex: Female
  Weight: 72 kg

DRUGS (6)
  1. REMICADE [Suspect]
     Active Substance: INFLIXIMAB
     Indication: Rheumatoid arthritis
     Route: 041
  2. INFLIXIMAB [Suspect]
     Active Substance: INFLIXIMAB
     Indication: Rheumatoid arthritis
     Route: 042
  3. INFLIXIMAB [Suspect]
     Active Substance: INFLIXIMAB
     Route: 042
  4. BUDESONIDE [Concomitant]
     Active Substance: BUDESONIDE
     Indication: Interstitial lung disease
  5. FORMOTEROL FUMARATE [Concomitant]
     Active Substance: FORMOTEROL FUMARATE
     Indication: Interstitial lung disease
  6. METHOTREXATE [Concomitant]
     Active Substance: METHOTREXATE
     Route: 058

REACTIONS (1)
  - Cataract [Unknown]
